FAERS Safety Report 18397592 (Version 1)
Quarter: 2020Q4

REPORT INFORMATION
  Report Type: Spontaneous
  Country: US (occurrence: US)
  Receive Date: 20201018
  Receipt Date: 20201018
  Transmission Date: 20210114
  Serious: Yes (Other)
  Sender: FDA-Public Use
  Company Number: None

PATIENT
  Age: 32 Year
  Sex: Male
  Weight: 90.45 kg

DRUGS (1)
  1. INVEGA TRINZA [Suspect]
     Active Substance: PALIPERIDONE PALMITATE
     Indication: SCHIZOAFFECTIVE DISORDER BIPOLAR TYPE
     Dosage: ?          QUANTITY:1 INJECTION(S);OTHER FREQUENCY:EVERY TWELVE WEEKS;?
     Route: 030

REACTIONS (7)
  - Bipolar disorder [None]
  - Drug ineffective [None]
  - Fatigue [None]
  - Product storage error [None]
  - Mania [None]
  - Psychotic disorder [None]
  - Headache [None]

NARRATIVE: CASE EVENT DATE: 20200901
